FAERS Safety Report 23737295 (Version 1)
Quarter: 2024Q2

REPORT INFORMATION
  Report Type: Spontaneous
  Country: US (occurrence: US)
  Receive Date: 20240412
  Receipt Date: 20240412
  Transmission Date: 20240716
  Serious: No
  Sender: FDA-Public Use
  Company Number: US-PFIZER INC-202400084515

PATIENT
  Age: 62 Year
  Sex: Male

DRUGS (11)
  1. XELJANZ XR [Suspect]
     Active Substance: TOFACITINIB CITRATE
     Dosage: 11 MG, DAILY
     Dates: start: 2022
  2. DULOXETINE [Concomitant]
     Active Substance: DULOXETINE
  3. AMITRIPTYLINE [Concomitant]
     Active Substance: AMITRIPTYLINE
  4. VALACYCLOVIR [Concomitant]
     Active Substance: VALACYCLOVIR HYDROCHLORIDE
  5. PANTOPRAZOLE SODIUM [Concomitant]
     Active Substance: PANTOPRAZOLE SODIUM
  6. EZETIMIBE [Concomitant]
     Active Substance: EZETIMIBE
  7. NUCYNTA [Concomitant]
     Active Substance: TAPENTADOL HYDROCHLORIDE
  8. NAPROXEN [Concomitant]
     Active Substance: NAPROXEN
  9. OTEZLA [Concomitant]
     Active Substance: APREMILAST
  10. PREGABALIN [Concomitant]
     Active Substance: PREGABALIN
  11. VALSARTAN [Concomitant]
     Active Substance: VALSARTAN

REACTIONS (1)
  - Pain [Unknown]
